FAERS Safety Report 7402308-4 (Version None)
Quarter: 2011Q1

REPORT INFORMATION
  Report Type: 
  Country: None (occurrence: None)
  Receive Date: 20110328
  Receipt Date: 20110315
  Transmission Date: 20110831
  Serious: Yes (Death, Hospitalization)
  Sender: FDA-Public Use
  Company Number: 2011MA002461

PATIENT
  Age: 25 Year
  Sex: Male

DRUGS (3)
  1. HALOPERIDOL LACTATE [Suspect]
     Indication: SCHIZOPHRENIA
  2. METFORMIN HCL [Concomitant]
  3. BIPERIDEN [Concomitant]

REACTIONS (16)
  - LEFT VENTRICULAR DYSFUNCTION [None]
  - CONTINUOUS HAEMODIAFILTRATION [None]
  - BLOOD CREATININE INCREASED [None]
  - COMA [None]
  - HYPERKALAEMIA [None]
  - LACTIC ACIDOSIS [None]
  - RHABDOMYOLYSIS [None]
  - NEUROLEPTIC MALIGNANT SYNDROME [None]
  - BLOOD UREA INCREASED [None]
  - HYPERGLYCAEMIC HYPEROSMOLAR NONKETOTIC SYNDROME [None]
  - VENTRICULAR FIBRILLATION [None]
  - TREATMENT NONCOMPLIANCE [None]
  - HAEMOGLOBIN INCREASED [None]
  - NO THERAPEUTIC RESPONSE [None]
  - OLIGURIA [None]
  - MULTI-ORGAN FAILURE [None]
